FAERS Safety Report 9390365 (Version 1)
Quarter: 2013Q3

REPORT INFORMATION
  Report Type: Spontaneous
  Country: BR (occurrence: BR)
  Receive Date: 20130709
  Receipt Date: 20130709
  Transmission Date: 20140515
  Serious: Yes (Hospitalization)
  Sender: FDA-Public Use
  Company Number: BR-BRISTOL-MYERS SQUIBB COMPANY-19065523

PATIENT
  Age: 64 Year
  Sex: Female
  Weight: 77 kg

DRUGS (1)
  1. BARACLUDE TABS 0.5 MG [Suspect]
     Indication: HEPATITIS B

REACTIONS (5)
  - Diverticulitis [Unknown]
  - Dysgeusia [Unknown]
  - Emotional disorder [Unknown]
  - Nausea [Unknown]
  - Decreased appetite [Unknown]
